FAERS Safety Report 10784342 (Version 1)
Quarter: 2015Q1

REPORT INFORMATION
  Report Type: Spontaneous
  Country: US (occurrence: None)
  Receive Date: 20150209
  Receipt Date: 20150209
  Transmission Date: 20150721
  Serious: No
  Sender: FDA-Public Use
  Company Number: None

PATIENT

DRUGS (2)
  1. EPINEPHRINE HCL [Suspect]
     Active Substance: EPINEPHRINE
     Dosage: 100 MCG PER ML SYRINGE
  2. EPINEPHRINE HCL [Suspect]
     Active Substance: EPINEPHRINE
     Dosage: 10 MCG PER ML SYRINGE

REACTIONS (5)
  - Drug prescribing error [None]
  - Accidental overdose [None]
  - Circumstance or information capable of leading to medication error [None]
  - Medication error [None]
  - Blood pressure increased [None]
